FAERS Safety Report 23829111 (Version 1)
Quarter: 2024Q2

REPORT INFORMATION
  Report Type: Spontaneous
  Country: US (occurrence: US)
  Receive Date: 20240508
  Receipt Date: 20240508
  Transmission Date: 20240716
  Serious: No
  Sender: FDA-Public Use
  Company Number: US-UCBSA-2024007753

PATIENT
  Sex: Female

DRUGS (1)
  1. CIMZIA [Suspect]
     Active Substance: CERTOLIZUMAB PEGOL
     Indication: Crohn^s disease
     Dosage: 400 MILLIGRAM, EV 4 WEEKS, INJECT THE CONTENTS OF 2 SYRINGES UNDER THE SKIN EVERY 28 DAYS AS DIRECTE
     Route: 058
     Dates: start: 2017

REACTIONS (3)
  - Cough [Unknown]
  - Illness [Unknown]
  - Nasopharyngitis [Unknown]
